FAERS Safety Report 5298935-3 (Version None)
Quarter: 2007Q2

REPORT INFORMATION
  Report Type: 
  Country: None (occurrence: None)
  Receive Date: 20070417
  Receipt Date: 20070406
  Transmission Date: 20071010
  Serious: Yes (Other)
  Sender: FDA-Public Use
  Company Number: PHBS2007IT05806

PATIENT
  Age: 69 Year
  Sex: Female

DRUGS (3)
  1. BONDRONAT [Suspect]
     Indication: METASTASES TO BONE
     Dosage: 6 MG, UNK
     Route: 042
     Dates: start: 20070118, end: 20070305
  2. LEVOTHYROXINE SODIUM [Concomitant]
     Indication: GOITRE
     Dosage: 50 MICROGR
     Route: 048
  3. ZOMETA [Suspect]
     Indication: METASTASES TO BONE
     Dosage: 4 MG, QMO
     Route: 042
     Dates: start: 20060202, end: 20070117

REACTIONS (1)
  - OSTEOMYELITIS [None]
